FAERS Safety Report 6761882-1 (Version None)
Quarter: 2010Q2

REPORT INFORMATION
  Report Type: 
  Country: None (occurrence: None)
  Receive Date: 20100609
  Receipt Date: 20100602
  Transmission Date: 20101027
  Serious: No
  Sender: FDA-Public Use
  Company Number: US-JNJFOC-20100601241

PATIENT
  Sex: Female
  Weight: 68.04 kg

DRUGS (4)
  1. SANDOZ FENTANYL TRANSDERMAL SYSTEM [Suspect]
     Indication: PAIN
     Route: 062
  2. SANDOZ FENTANYL TRANSDERMAL SYSTEM [Suspect]
     Route: 062
     Dates: start: 20100325
  3. FENTANYL-100 [Suspect]
     Indication: PAIN
     Route: 062
  4. NAPROXEN [Concomitant]
     Route: 048

REACTIONS (6)
  - DRUG DOSE OMISSION [None]
  - HYPERTENSION [None]
  - MEDICATION ERROR [None]
  - PAIN [None]
  - SEDATION [None]
  - WRONG TECHNIQUE IN DRUG USAGE PROCESS [None]
